FAERS Safety Report 17937959 (Version 2)
Quarter: 2020Q3

REPORT INFORMATION
  Report Type: Spontaneous
  Country: DE (occurrence: DE)
  Receive Date: 20200624
  Receipt Date: 20200722
  Transmission Date: 20201103
  Serious: Yes (Life-Threatening)
  Sender: FDA-Public Use
  Company Number: DE-009507513-2006DEU007335

PATIENT
  Age: 66 Year
  Sex: Male

DRUGS (1)
  1. KEYTRUDA [Suspect]
     Active Substance: PEMBROLIZUMAB
     Indication: LUNG NEOPLASM MALIGNANT
     Dosage: 200 MILLIGRAM
     Route: 041
     Dates: start: 201910, end: 20200107

REACTIONS (4)
  - Pericardial effusion [Unknown]
  - Pleural effusion [Unknown]
  - Adrenal insufficiency [Unknown]
  - Polyserositis [Unknown]

NARRATIVE: CASE EVENT DATE: 20200429
